FAERS Safety Report 6746400-6 (Version None)
Quarter: 2010Q2

REPORT INFORMATION
  Report Type: 
  Country: None (occurrence: None)
  Receive Date: 20100528
  Receipt Date: 20100325
  Transmission Date: 20101027
  Serious: Yes (Other)
  Sender: FDA-Public Use
  Company Number: A0847114A

PATIENT
  Age: 57 Year
  Sex: Male
  Weight: 70.8 kg

DRUGS (5)
  1. FLOLAN [Suspect]
     Indication: PULMONARY HYPERTENSION
     Route: 065
     Dates: start: 19970822
  2. OXYGEN [Concomitant]
     Dosage: 3LM AT NIGHT
     Route: 045
  3. REVATIO [Concomitant]
     Dosage: 20MG THREE TIMES PER DAY
     Route: 048
  4. TORSEMIDE [Concomitant]
     Dosage: 100MG PER DAY
     Route: 048
  5. SPIRONOLACTONE [Concomitant]
     Dosage: 25MG TWICE PER DAY
     Route: 048

REACTIONS (1)
  - THROMBOCYTOPENIA [None]
